FAERS Safety Report 5974901-7 (Version None)
Quarter: 2008Q4

REPORT INFORMATION
  Report Type: 
  Country: None (occurrence: None)
  Receive Date: 20081202
  Receipt Date: 20081124
  Transmission Date: 20090506
  Serious: Yes (Life-Threatening, Hospitalization, Disabling)
  Sender: FDA-Public Use
  Company Number: FR-PFIZER INC-2008099843

PATIENT
  Sex: Male

DRUGS (5)
  1. TAHOR [Suspect]
     Indication: DYSLIPIDAEMIA
     Route: 048
     Dates: start: 20000101, end: 20080614
  2. VIAGRA [Suspect]
     Route: 048
     Dates: end: 20080101
  3. ZESTRIL [Suspect]
     Indication: HYPERTENSION
     Route: 048
     Dates: start: 20000101, end: 20080614
  4. KARDEGIC [Suspect]
     Route: 048
     Dates: start: 20000101
  5. PERMIXON [Suspect]
     Route: 048
     Dates: end: 20080101

REACTIONS (2)
  - DIARRHOEA [None]
  - HEPATITIS FULMINANT [None]
